FAERS Safety Report 21641934 (Version 1)
Quarter: 2022Q4

REPORT INFORMATION
  Report Type: Report from Study
  Country: CA (occurrence: CA)
  Receive Date: 20221125
  Receipt Date: 20221125
  Transmission Date: 20230113
  Serious: Yes (Hospitalization, Other)
  Sender: FDA-Public Use
  Company Number: CA-ABBVIE-4187089

PATIENT
  Age: 59 Year
  Sex: Male
  Weight: 54.431 kg

DRUGS (2)
  1. HUMIRA [Suspect]
     Active Substance: ADALIMUMAB
     Indication: Product used for unknown indication
     Dosage: FORM STRENGTH: 40MG
     Route: 058
     Dates: start: 20220721, end: 2022
  2. HUMIRA [Suspect]
     Active Substance: ADALIMUMAB
     Route: 058
     Dates: start: 20221104

REACTIONS (7)
  - Crohn^s disease [Recovering/Resolving]
  - Depression [Unknown]
  - Illness [Unknown]
  - Enterovesical fistula [Unknown]
  - Hospitalisation [Unknown]
  - Weight decreased [Unknown]
  - Vesical fistula [Unknown]

NARRATIVE: CASE EVENT DATE: 20221004
